FAERS Safety Report 19063611 (Version 2)
Quarter: 2021Q1

REPORT INFORMATION
  Report Type: Spontaneous
  Country: US (occurrence: US)
  Receive Date: 20210326
  Receipt Date: 20210330
  Transmission Date: 20210420
  Serious: Yes (Death)
  Sender: FDA-Public Use
  Company Number: US-PFIZER INC-2021302856

PATIENT
  Age: 78 Year
  Sex: Male

DRUGS (1)
  1. RETACRIT [Suspect]
     Active Substance: EPOETIN ALFA-EPBX
     Dosage: 10000 IU/ML, WEEKLY

REACTIONS (1)
  - Death [Fatal]

NARRATIVE: CASE EVENT DATE: 20210318
